FAERS Safety Report 5694451-5 (Version None)
Quarter: 2008Q2

REPORT INFORMATION
  Report Type: 
  Country: None (occurrence: None)
  Receive Date: 20080404
  Receipt Date: 20080325
  Transmission Date: 20081010
  Serious: Yes (Other)
  Sender: FDA-Public Use
  Company Number: PHHY2008GB03889

PATIENT
  Age: 57 Year
  Sex: Female
  Weight: 90.3 kg

DRUGS (5)
  1. DIOVAN [Suspect]
     Indication: HYPERTENSION
     Dosage: 80 MG, UNK
     Route: 048
     Dates: start: 20080215, end: 20080221
  2. MULTI-VITAMINS [Concomitant]
  3. GLUCOSAMINE [Concomitant]
     Dosage: 1000 MG, UNK
     Route: 048
  4. OMEPRAZOLE [Concomitant]
     Indication: DYSPEPSIA
     Dosage: 10 MG, UNK
     Route: 048
     Dates: start: 20070201
  5. RAMIPRIL [Concomitant]
     Indication: HYPERTENSION
     Dosage: 5 MG, UNK
     Route: 048
     Dates: start: 20071001, end: 20070215

REACTIONS (7)
  - ANXIETY [None]
  - APATHY [None]
  - DEPRESSED MOOD [None]
  - DEPRESSION [None]
  - IRRITABILITY [None]
  - SUICIDAL IDEATION [None]
  - TEARFULNESS [None]
